FAERS Safety Report 10847529 (Version 2)
Quarter: 2015Q2

REPORT INFORMATION
  Report Type: Spontaneous
  Country: US (occurrence: US)
  Receive Date: 20150220
  Receipt Date: 20150415
  Transmission Date: 20150821
  Serious: No
  Sender: FDA-Public Use
  Company Number: US-GILEAD-2015-0137888

PATIENT
  Age: 61 Year
  Sex: Female

DRUGS (1)
  1. HARVONI [Suspect]
     Active Substance: LEDIPASVIR\SOFOSBUVIR
     Indication: HEPATITIS C
     Dosage: 1 DF, QD
     Route: 065
     Dates: start: 20150105

REACTIONS (2)
  - Rash [Recovered/Resolved]
  - Skin ulcer [Unknown]

NARRATIVE: CASE EVENT DATE: 20150213
